FAERS Safety Report 4730825-4 (Version None)
Quarter: 2005Q3

REPORT INFORMATION
  Report Type: 
  Country: None (occurrence: None)
  Receive Date: 20050719
  Receipt Date: 20050316
  Transmission Date: 20060218
  Serious: Yes (Hospitalization)
  Sender: FDA-Public Use
  Company Number: 174095

PATIENT
  Age: 41 Year
  Sex: Female
  Weight: 115.2136 kg

DRUGS (9)
  1. AVONEX [Suspect]
     Indication: MULTIPLE SCLEROSIS
     Dosage: 30 UG;QW;IM
     Route: 030
     Dates: start: 20030201, end: 20030501
  2. AVONEX [Suspect]
     Indication: MULTIPLE SCLEROSIS
  3. ZOCOR [Concomitant]
  4. NORVASC [Concomitant]
  5. PLAVIX [Concomitant]
  6. INSULIN [Concomitant]
  7. IMDUR [Concomitant]
  8. AVANDIA [Concomitant]
  9. ACCUPRIL [Concomitant]

REACTIONS (2)
  - MULTIPLE SCLEROSIS RELAPSE [None]
  - SPONDYLITIS [None]
